FAERS Safety Report 22627356 (Version 7)
Quarter: 2023Q4

REPORT INFORMATION
  Report Type: Spontaneous
  Country: CA (occurrence: CA)
  Receive Date: 20230622
  Receipt Date: 20231125
  Transmission Date: 20240110
  Serious: Yes (Other)
  Sender: FDA-Public Use
  Company Number: CA-CELLTRION INC.-2022CA019381

PATIENT

DRUGS (10)
  1. INFLECTRA [Suspect]
     Active Substance: INFLIXIMAB-DYYB
     Indication: Crohn^s disease
     Dosage: 5 MG/KG, WEEKS 0, 2, 6 THEN Q 8 WEEKS
     Route: 042
     Dates: start: 20220210, end: 20220324
  2. INFLECTRA [Suspect]
     Active Substance: INFLIXIMAB-DYYB
     Dosage: 5 MG/KG, WEEKS 0, 2, 6 THEN Q 8 WEEKS
     Route: 042
     Dates: start: 20220324
  3. INFLECTRA [Suspect]
     Active Substance: INFLIXIMAB-DYYB
     Dosage: 5 MG/KG, EVERY 8 WEEK (WEEKS 0, 2, 6 THEN Q 8 WEEKS)
     Route: 042
     Dates: start: 20221207
  4. INFLECTRA [Suspect]
     Active Substance: INFLIXIMAB-DYYB
     Dosage: 5 MG/KG, EVERY 8 WEEK (WEEKS 0, 2, 6 THEN Q 8 WEEKS)
     Route: 042
     Dates: start: 20221207
  5. INFLECTRA [Suspect]
     Active Substance: INFLIXIMAB-DYYB
     Dosage: 5 MG/KG, EVERY 8 WEEK (WEEKS 0, 2, 6 THEN Q 8 WEEKS)
     Route: 042
     Dates: start: 20221207
  6. INFLECTRA [Suspect]
     Active Substance: INFLIXIMAB-DYYB
     Dosage: 5 MG/KG, WEEK 0,2,6 THEN Q 8 WEEKS
     Route: 042
     Dates: start: 20230314
  7. INFLECTRA [Suspect]
     Active Substance: INFLIXIMAB-DYYB
     Dosage: 380 MG, AFTER 13 WEEKS (SUPPOSED TO RECEIVE PRESCRIBED INFUSIONS ARE EVERY 8 WEEKS
     Route: 042
     Dates: start: 20230613
  8. INFLECTRA [Suspect]
     Active Substance: INFLIXIMAB-DYYB
     Dosage: 360 MG, AFTER 8 WEEKS AND 2 DAYS
     Route: 042
     Dates: start: 20230810
  9. INFLECTRA [Suspect]
     Active Substance: INFLIXIMAB-DYYB
     Dosage: 5 MG/KG DOSE, THEN A DOSE 4 WEEKS AFTER, THEN EVERY 8 WEEKS - NOT YET STARTED
     Route: 042
  10. INFLECTRA [Suspect]
     Active Substance: INFLIXIMAB-DYYB
     Dosage: 360 MG (5MG/KG) 14 WEEKS (PRESCRIBED TREATMENT FREQUENCY FOR THIS PATIENT IS Q8 WEEKS)
     Route: 042
     Dates: start: 20231116

REACTIONS (11)
  - Arthralgia [Recovered/Resolved]
  - Arthropathy [Unknown]
  - Condition aggravated [Not Recovered/Not Resolved]
  - Therapeutic response shortened [Unknown]
  - Pain [Recovered/Resolved]
  - Streptococcal infection [Recovering/Resolving]
  - Gait inability [Not Recovered/Not Resolved]
  - Malaise [Not Recovered/Not Resolved]
  - Fatigue [Not Recovered/Not Resolved]
  - Off label use [Unknown]
  - Inappropriate schedule of product administration [Unknown]

NARRATIVE: CASE EVENT DATE: 20230101
